FAERS Safety Report 23450911 (Version 1)
Quarter: 2024Q1

REPORT INFORMATION
  Report Type: Other
  Country: US (occurrence: None)
  Receive Date: 20240129
  Receipt Date: 20240129
  Transmission Date: 20240409
  Serious: Yes (Hospitalization)
  Sender: FDA-Public Use
  Company Number: US-ROCHE-3497104

PATIENT
  Age: 45 Year
  Sex: Female
  Weight: 79.904 kg

DRUGS (2)
  1. NUTROPIN AQ [Suspect]
     Active Substance: SOMATROPIN
     Indication: Product used for unknown indication
     Dosage: DOSAGE UNKNOWN-WAS ON GH IN PAST FOLLOWING CAR ACCIDENT, SYMPTOMS POST DC OF GH
     Route: 058
  2. NUTROPIN AQ [Suspect]
     Active Substance: SOMATROPIN

REACTIONS (7)
  - Body temperature increased [Unknown]
  - Autonomic nervous system imbalance [Unknown]
  - Glucose tolerance impaired [Unknown]
  - Cognitive disorder [Unknown]
  - Suicidal ideation [Unknown]
  - Infertility female [Unknown]
  - Pyrexia [Unknown]
